FAERS Safety Report 8446850-6 (Version None)
Quarter: 2012Q2

REPORT INFORMATION
  Report Type: 
  Country: None (occurrence: None)
  Receive Date: 20120612
  Receipt Date: 20120612
  Transmission Date: 20120825
  Serious: Yes (Other)
  Sender: FDA-Public Use
  Company Number: None

PATIENT
  Age: 72 Year
  Sex: Female
  Weight: 61.2356 kg

DRUGS (1)
  1. CARBODP[A/LEVODOPA, 25/100 TEVA [Suspect]
     Indication: PARKINSON'S DISEASE
     Dosage: 1 TAB, QID, PO
     Route: 048

REACTIONS (4)
  - PRODUCT SUBSTITUTION ISSUE [None]
  - MOTOR DYSFUNCTION [None]
  - PRODUCT QUALITY ISSUE [None]
  - PRODUCT MEASURED POTENCY ISSUE [None]
